FAERS Safety Report 7540599-X (Version None)
Quarter: 2011Q2

REPORT INFORMATION
  Report Type: 
  Country: None (occurrence: None)
  Receive Date: 20110610
  Receipt Date: 20110606
  Transmission Date: 20111010
  Serious: Yes (Other)
  Sender: FDA-Public Use
  Company Number: US-PFIZER INC-2009252515

PATIENT
  Sex: Female
  Weight: 88.435 kg

DRUGS (15)
  1. NORVASC [Suspect]
     Dosage: UNK
     Route: 048
  2. IMDUR [Concomitant]
     Indication: CARDIAC DISORDER
     Dosage: UNK
  3. CELEBREX [Suspect]
     Indication: RHEUMATOID ARTHRITIS
     Dosage: 200 MG, 1X/DAY
     Route: 048
  4. NEURONTIN [Suspect]
     Indication: DIABETIC NEUROPATHY
  5. RAMIPRIL [Concomitant]
     Indication: CARDIAC DISORDER
     Dosage: UNK
  6. COLCHICINE [Concomitant]
     Indication: GOUT
     Dosage: UNK
  7. ZYBAN [Concomitant]
     Indication: BIPOLAR DISORDER
     Dosage: UNK
  8. GLUCOTROL [Suspect]
     Indication: DIABETES MELLITUS
     Dosage: 5 MG, 1X/DAY
     Route: 048
  9. NEURONTIN [Suspect]
     Indication: NEUROPATHY PERIPHERAL
     Dosage: UNK
     Route: 048
     Dates: start: 19920101
  10. LEXAPRO [Concomitant]
     Indication: BIPOLAR DISORDER
     Dosage: UNK
  11. MULTI-VITAMINS [Concomitant]
     Dosage: UNK
  12. ACETYLSALICYLIC ACID [Concomitant]
     Indication: CARDIAC DISORDER
     Dosage: 325 MG, 1X/DAY
     Route: 048
  13. NOVOLOG MIX 70/30 [Concomitant]
     Indication: DIABETES MELLITUS
     Dosage: UNK
  14. ALLOPURINOL [Concomitant]
     Indication: GOUT
     Dosage: UNK
  15. LITHIUM [Concomitant]
     Indication: BIPOLAR DISORDER
     Dosage: UNK

REACTIONS (8)
  - MYOCARDIAL INFARCTION [None]
  - FIBROMYALGIA [None]
  - PAIN [None]
  - RHEUMATOID ARTHRITIS [None]
  - FRACTURE [None]
  - SURGERY [None]
  - NEUROPATHY PERIPHERAL [None]
  - HYPERSENSITIVITY [None]
